FAERS Safety Report 10879917 (Version 4)
Quarter: 2016Q1

REPORT INFORMATION
  Report Type: Spontaneous
  Country: US (occurrence: US)
  Receive Date: 20150302
  Receipt Date: 20160307
  Transmission Date: 20160525
  Serious: Yes (Other)
  Sender: FDA-Public Use
  Company Number: US-PFIZER INC-2015069135

PATIENT
  Age: 63 Year
  Sex: Female

DRUGS (4)
  1. EMSAM PATCH [Concomitant]
     Indication: DEPRESSION
     Dosage: UNK, 1X/DAY (ONCE EVERY 24 HOURS)
  2. XANAX [Suspect]
     Active Substance: ALPRAZOLAM
     Indication: PANIC ATTACK
     Dosage: 0.05 MG UP TO TWELVE, DAILY
     Route: 048
  3. LEVOTHYROXINE. [Concomitant]
     Active Substance: LEVOTHYROXINE
     Indication: THYROID DISORDER
     Dosage: UNK
  4. XANAX [Suspect]
     Active Substance: ALPRAZOLAM
     Dosage: 2MG TABLET, SCORED TO TAKE 0.05MG UP TO TWELVE A DAY
     Route: 048

REACTIONS (2)
  - Drug ineffective [Unknown]
  - Drug dependence [Unknown]
